FAERS Safety Report 13048692 (Version 1)
Quarter: 2016Q4

REPORT INFORMATION
  Report Type: Spontaneous
  Country: US (occurrence: US)
  Receive Date: 20161220
  Receipt Date: 20161220
  Transmission Date: 20170207
  Serious: Yes (Death)
  Sender: FDA-Public Use
  Company Number: None

PATIENT
  Age: 80 Year
  Sex: Male
  Weight: 72.58 kg

DRUGS (7)
  1. MOBIC [Concomitant]
     Active Substance: MELOXICAM
  2. CLOPIDOGREL [Concomitant]
     Active Substance: CLOPIDOGREL BISULFATE
  3. TOPROL XL [Concomitant]
     Active Substance: METOPROLOL SUCCINATE
  4. PREDNISONE. [Concomitant]
     Active Substance: PREDNISONE
  5. PLETAL [Concomitant]
     Active Substance: CILOSTAZOL
  6. CLOPIDOGREL [Suspect]
     Active Substance: CLOPIDOGREL BISULFATE
     Indication: VASCULAR PROCEDURE COMPLICATION
     Dosage: 1 PILL DAILY, ONE PILL BY MOUTH
     Route: 048
     Dates: start: 2013
  7. BENADRYL [Concomitant]
     Active Substance: DIPHENHYDRAMINE HYDROCHLORIDE

REACTIONS (2)
  - Cerebral haemorrhage [None]
  - Coma [None]

NARRATIVE: CASE EVENT DATE: 20160223
